FAERS Safety Report 5235327-7 (Version None)
Quarter: 2007Q1

REPORT INFORMATION
  Report Type: 
  Country: None (occurrence: None)
  Receive Date: 20070212
  Receipt Date: 20070130
  Transmission Date: 20070707
  Serious: Yes (Other)
  Sender: FDA-Public Use
  Company Number: PHEH2007US01459

PATIENT
  Age: 70 Year
  Sex: Female

DRUGS (1)
  1. ZELNORM [Suspect]
     Indication: IRRITABLE BOWEL SYNDROME
     Dosage: 6 MG, BID
     Route: 048
     Dates: start: 20070106, end: 20070107

REACTIONS (4)
  - EYE DISORDER [None]
  - HEART RATE IRREGULAR [None]
  - HEMIPARESIS [None]
  - VISION BLURRED [None]
